APPROVED DRUG PRODUCT: FROVA
Active Ingredient: FROVATRIPTAN SUCCINATE
Strength: EQ 2.5MG BASE
Dosage Form/Route: TABLET;ORAL
Application: N021006 | Product #001 | TE Code: AB
Applicant: ENDO OPERATIONS LTD
Approved: Nov 8, 2001 | RLD: Yes | RS: Yes | Type: RX